FAERS Safety Report 12891126 (Version 1)
Quarter: 2016Q4

REPORT INFORMATION
  Report Type: Report from Study
  Country: None (occurrence: US)
  Receive Date: 20161027
  Receipt Date: 20161027
  Transmission Date: 20170207
  Serious: Yes (Other)
  Sender: FDA-Public Use
  Company Number: US-ABBVIE-16P-163-1764166-00

PATIENT
  Sex: Male

DRUGS (2)
  1. ANDROGEL [Suspect]
     Active Substance: TESTOSTERONE
     Indication: PRODUCT USED FOR UNKNOWN INDICATION
     Route: 061
  2. ANDROGEL [Suspect]
     Active Substance: TESTOSTERONE
     Route: 061

REACTIONS (15)
  - Rotator cuff repair [Unknown]
  - Obsessive-compulsive disorder [Recovering/Resolving]
  - Alopecia [Not Recovered/Not Resolved]
  - Prolactin-producing pituitary tumour [Recovered/Resolved]
  - Drug ineffective [Unknown]
  - Fatigue [Unknown]
  - Skin irritation [Unknown]
  - Panic attack [Unknown]
  - Nightmare [Unknown]
  - Rash [Unknown]
  - Red blood cell count increased [Unknown]
  - Nervousness [Unknown]
  - Mania [Unknown]
  - Anxiety [Unknown]
  - Blood prolactin increased [Unknown]
